FAERS Safety Report 4704481-5 (Version None)
Quarter: 2005Q2

REPORT INFORMATION
  Report Type: 
  Country: None (occurrence: None)
  Receive Date: 20050628
  Receipt Date: 20050613
  Transmission Date: 20051028
  Serious: Yes (Hospitalization)
  Sender: FDA-Public Use
  Company Number: GBS050316986

PATIENT
  Age: 26 Year
  Sex: Male

DRUGS (4)
  1. OLANZAPINE [Suspect]
     Indication: PSYCHOTIC DISORDER
     Dosage: 30 MG
     Route: 048
     Dates: start: 20040101
  2. CITALOPRAM [Concomitant]
  3. DIAZEPAM [Concomitant]
  4. ZOPICLONE (ZOPICLONE) [Concomitant]

REACTIONS (3)
  - CARDIAC FAILURE [None]
  - CARDIOMYOPATHY [None]
  - DYSPNOEA [None]
